FAERS Safety Report 9277768 (Version 1)
Quarter: 2013Q2

REPORT INFORMATION
  Report Type: Report from Study
  Country: CA (occurrence: CA)
  Receive Date: 20130508
  Receipt Date: 20130508
  Transmission Date: 20140414
  Serious: Yes (Other)
  Sender: FDA-Public Use
  Company Number: CA-JNJFOC-20130500548

PATIENT
  Age: 64 Year
  Sex: Female
  Weight: 75.8 kg

DRUGS (8)
  1. REMICADE [Suspect]
     Indication: RHEUMATOID ARTHRITIS
     Route: 042
     Dates: start: 200205
  2. OXYCODONE [Concomitant]
     Route: 065
  3. METHOTREXATE [Concomitant]
     Route: 065
  4. RAMIPRIL [Concomitant]
     Route: 065
  5. INDOCID [Concomitant]
     Route: 065
  6. PRAMIPEXOLE [Concomitant]
     Route: 065
  7. SYMBICORT [Concomitant]
     Route: 065
  8. HYDROCHLOORTHIAZIDE [Concomitant]
     Route: 065

REACTIONS (1)
  - Synovial rupture [Recovered/Resolved]
